FAERS Safety Report 7963424-1 (Version None)
Quarter: 2011Q4

REPORT INFORMATION
  Report Type: 
  Country: None (occurrence: None)
  Receive Date: 20111205
  Receipt Date: 20110408
  Transmission Date: 20120403
  Serious: Yes (Other)
  Sender: FDA-Public Use
  Company Number: 2011CP000052

PATIENT
  Age: 82 Year
  Sex: Female

DRUGS (1)
  1. ACETAMINOPHEN [Suspect]
     Indication: MUSCULOSKELETAL PAIN
     Dosage: IV
     Route: 042

REACTIONS (3)
  - LOSS OF CONSCIOUSNESS [None]
  - DYSPNOEA [None]
  - VOMITING [None]
